FAERS Safety Report 16772237 (Version 1)
Quarter: 2019Q4

REPORT INFORMATION
  Report Type: Spontaneous
  Country: US (occurrence: US)
  Receive Date: 20190904
  Receipt Date: 20190904
  Transmission Date: 20200122
  Serious: Yes (Other)
  Sender: FDA-Public Use
  Company Number: None

PATIENT
  Age: 25 Year
  Sex: Female
  Weight: 41.4 kg

DRUGS (6)
  1. TRIAMCINOLONE OINTMENT AND CREAM [Concomitant]
  2. BETAMETHASONE SOLUTION [Concomitant]
  3. PREDNISONE. [Concomitant]
     Active Substance: PREDNISONE
  4. HUMIRA [Suspect]
     Active Substance: ADALIMUMAB
     Indication: CROHN^S DISEASE
     Dosage: ?          OTHER FREQUENCY:BIWEEKLY;?
     Route: 030
     Dates: start: 20190110, end: 20190606
  5. CALCIPOTRIENE OINTMENT [Concomitant]
     Active Substance: CALCIPOTRIENE
  6. TYLENOL [Concomitant]
     Active Substance: ACETAMINOPHEN

REACTIONS (5)
  - Pain [None]
  - Alopecia [None]
  - Musculoskeletal disorder [None]
  - Psoriasis [None]
  - Gait inability [None]

NARRATIVE: CASE EVENT DATE: 20190710
